FAERS Safety Report 23937256 (Version 1)
Quarter: 2024Q2

REPORT INFORMATION
  Report Type: Spontaneous
  Country: MX (occurrence: MX)
  Receive Date: 20240604
  Receipt Date: 20240604
  Transmission Date: 20240715
  Serious: Yes (Hospitalization, Other)
  Sender: FDA-Public Use
  Company Number: MX-MLMSERVICE-20240513-PI058037-00102-1

PATIENT
  Age: 59 Year
  Sex: Female

DRUGS (5)
  1. SERTRALINE [Suspect]
     Active Substance: SERTRALINE HYDROCHLORIDE
     Indication: Major depression
     Dosage: 100 MILLIGRAM
     Route: 065
  2. LEVETIRACETAM [Concomitant]
     Active Substance: LEVETIRACETAM
     Indication: Major depression
     Dosage: 750 MILLIGRAM, TWO TIMES A DAY
     Route: 065
  3. CARBAMAZEPINE [Concomitant]
     Active Substance: CARBAMAZEPINE
     Indication: Major depression
     Dosage: 800 MILLIGRAM, TWO TIMES A DAY
     Route: 065
  4. OLANZAPINE [Concomitant]
     Active Substance: OLANZAPINE
     Indication: Major depression
     Dosage: 10 MILLIGRAM
  5. LAMOTRIGINE [Concomitant]
     Active Substance: LAMOTRIGINE
     Indication: Major depression
     Dosage: 100 MILLIGRAM, TWO TIMES A DAY
     Route: 065

REACTIONS (1)
  - Hyponatraemic seizure [Unknown]
